FAERS Safety Report 6932607-1 (Version None)
Quarter: 2010Q3

REPORT INFORMATION
  Report Type: 
  Country: None (occurrence: None)
  Receive Date: 20100819
  Receipt Date: 20100810
  Transmission Date: 20110219
  Serious: Yes (Hospitalization)
  Sender: FDA-Public Use
  Company Number: US-ASTRAZENECA-2010SE37600

PATIENT
  Age: 19463 Day
  Sex: Female

DRUGS (5)
  1. NEXIUM [Suspect]
     Route: 048
     Dates: end: 20000101
  2. PRILOSEC [Suspect]
     Route: 048
     Dates: start: 19950101
  3. SYNTHROID [Concomitant]
  4. FISH OIL [Concomitant]
  5. ZYPREXA [Concomitant]

REACTIONS (5)
  - DRUG DOSE OMISSION [None]
  - DRUG INEFFECTIVE [None]
  - DYSPEPSIA [None]
  - NAUSEA [None]
  - POST-TRAUMATIC STRESS DISORDER [None]
